FAERS Safety Report 12246865 (Version 2)
Quarter: 2016Q2

REPORT INFORMATION
  Report Type: Report from Study
  Country: BR (occurrence: BR)
  Receive Date: 20160407
  Receipt Date: 20160419
  Transmission Date: 20160815
  Serious: Yes (Other)
  Sender: FDA-Public Use
  Company Number: BR-ABBVIE-16K-020-1598688-00

PATIENT
  Age: 42 Year
  Sex: Female
  Weight: 73 kg

DRUGS (6)
  1. TECNOMET [Concomitant]
     Active Substance: METHOTREXATE
     Indication: ARTHRITIS
     Route: 048
     Dates: start: 201512
  2. METHOTREXATE [Concomitant]
     Active Substance: METHOTREXATE
     Indication: RHEUMATOID ARTHRITIS
     Dates: start: 201512, end: 20160412
  3. HUMIRA [Suspect]
     Active Substance: ADALIMUMAB
     Indication: RHEUMATOID ARTHRITIS
     Route: 058
     Dates: start: 20160305, end: 20160320
  4. OLMESARTAN [Concomitant]
     Active Substance: OLMESARTAN
     Indication: HYPERTENSION
     Route: 048
     Dates: start: 201508
  5. PREDNISONE. [Concomitant]
     Active Substance: PREDNISONE
     Indication: RHEUMATOID ARTHRITIS
     Dates: start: 201512, end: 20160412
  6. PRELONE [Concomitant]
     Active Substance: PREDNISOLONE
     Indication: ARTHRITIS
     Route: 048
     Dates: start: 201512

REACTIONS (6)
  - Lupus-like syndrome [Recovered/Resolved]
  - Rash macular [Unknown]
  - Complement factor C3 decreased [Recovered/Resolved]
  - Wound [Not Recovered/Not Resolved]
  - Rash [Recovered/Resolved]
  - Synovitis [Unknown]

NARRATIVE: CASE EVENT DATE: 201603
